FAERS Safety Report 11855559 (Version 1)
Quarter: 2015Q4

REPORT INFORMATION
  Report Type: Spontaneous
  Country: DE (occurrence: DE)
  Receive Date: 20151221
  Receipt Date: 20151221
  Transmission Date: 20160305
  Serious: Yes (Death, Hospitalization, Other)
  Sender: FDA-Public Use
  Company Number: DE-BRISTOL-MYERS SQUIBB COMPANY-BMS-2015-088586

PATIENT
  Age: 80 Year
  Sex: Female

DRUGS (2)
  1. METFORMIN W/SITAGLIPTIN [Suspect]
     Active Substance: METFORMIN\SITAGLIPTIN PHOSPHATE
     Indication: PRODUCT USED FOR UNKNOWN INDICATION
     Dosage: 1 DF, BID
     Route: 065
  2. METFORMIN HYDROCHLORIDE. [Suspect]
     Active Substance: METFORMIN HYDROCHLORIDE
     Indication: PRODUCT USED FOR UNKNOWN INDICATION
     Dosage: UNK, BID
     Route: 065

REACTIONS (6)
  - Anuria [Fatal]
  - Bleeding varicose vein [Unknown]
  - Rhabdomyolysis [Fatal]
  - Lactic acidosis [Fatal]
  - Toxicity to various agents [Fatal]
  - Shock haemorrhagic [Unknown]
